FAERS Safety Report 14978053 (Version 2)
Quarter: 2019Q1

REPORT INFORMATION
  Report Type: Spontaneous
  Country: IT (occurrence: IT)
  Receive Date: 20180606
  Receipt Date: 20190213
  Transmission Date: 20190417
  Serious: Yes (Life-Threatening, Hospitalization, Other)
  Sender: FDA-Public Use
  Company Number: IT-ACCORD-068145

PATIENT
  Age: 42 Year
  Sex: Female

DRUGS (7)
  1. MYCOPHENOLIC ACID. [Suspect]
     Active Substance: MYCOPHENOLIC ACID
     Indication: IMMUNOSUPPRESSION
  2. NYSTATIN/NYSTATIN/LIPOSOME [Concomitant]
     Indication: CANDIDA INFECTION
  3. VALGANCICLOVIR/VALGANCICLOVIR HYDROCHLORIDE [Concomitant]
     Indication: ANTIVIRAL PROPHYLAXIS
  4. TACROLIMUS. [Suspect]
     Active Substance: TACROLIMUS
     Indication: IMMUNOSUPPRESSION
     Route: 048
  5. POSACONAZOLE [Suspect]
     Active Substance: POSACONAZOLE
     Indication: ANTIFUNGAL TREATMENT
     Dosage: LATER RE-INTRODUCED AT 100 MG TWICE DAILY DOSE.
     Route: 048
  6. METHYLPREDNISOLONE. [Concomitant]
     Active Substance: METHYLPREDNISOLONE
     Indication: IMMUNOSUPPRESSION
     Dosage: INDUCTION THERAPY
     Route: 042
  7. AMPHOTERICIN B/AMPHOTERICIN B/LIPOSOME [Concomitant]
     Indication: ANTIFUNGAL TREATMENT
     Route: 042

REACTIONS (3)
  - BK virus infection [Recovered/Resolved]
  - Cytomegalovirus infection [Recovered/Resolved]
  - Mucormycosis [Recovered/Resolved]
